FAERS Safety Report 20714042 (Version 2)
Quarter: 2022Q2

REPORT INFORMATION
  Report Type: Report from Study
  Country: KR (occurrence: KR)
  Receive Date: 20220415
  Receipt Date: 20220422
  Transmission Date: 20220720
  Serious: Yes (Hospitalization)
  Sender: FDA-Public Use
  Company Number: KR-SA-SAC20220412001310

PATIENT
  Age: 54 Year
  Sex: Male
  Weight: 70.6 kg

DRUGS (42)
  1. AFLIBERCEPT [Suspect]
     Active Substance: AFLIBERCEPT
     Indication: Colon cancer
     Dosage: 4 MG/KG, Q3W
     Route: 042
     Dates: start: 20210528
  2. AFLIBERCEPT [Suspect]
     Active Substance: AFLIBERCEPT
     Indication: Colorectal cancer
  3. IRINOTECAN [Suspect]
     Active Substance: IRINOTECAN
     Indication: Colon cancer
     Dosage: 150 MG/M2, Q3W
     Route: 042
     Dates: start: 20210528
  4. FLUOROURACIL [Suspect]
     Active Substance: FLUOROURACIL
     Indication: Colon cancer
     Dosage: 400 MG/M2, Q3W, BOLUS
     Route: 040
     Dates: start: 20210528
  5. FLUOROURACIL [Suspect]
     Active Substance: FLUOROURACIL
     Dosage: 2400 MG/M2, Q3W; CONTINOUS
     Route: 042
     Dates: start: 20210528
  6. LEUCOVORIN CALCIUM [Suspect]
     Active Substance: LEUCOVORIN CALCIUM
     Indication: Colon cancer
     Dosage: 400 MG/M2, Q3W
     Route: 042
     Dates: start: 20210528
  7. LYRICA [Concomitant]
     Active Substance: PREGABALIN
     Indication: Neuropathy peripheral
     Dosage: 75 MG, BID
     Route: 048
     Dates: start: 20200608
  8. GELMA [Concomitant]
     Indication: Gastritis prophylaxis
     Dosage: 10 MG, TID, SUSPENSION
     Route: 048
     Dates: start: 20211018
  9. ESOMEZOLE [Concomitant]
     Indication: Gastritis prophylaxis
     Dosage: 20 MG, QD
     Route: 048
     Dates: start: 20211018
  10. URSODIOL [Concomitant]
     Active Substance: URSODIOL
     Indication: Aspartate aminotransferase increased
     Dosage: 100 MG, TID
     Route: 048
     Dates: start: 20211203
  11. CODEINE [Concomitant]
     Active Substance: CODEINE
     Indication: Cough
     Dosage: 20 MG, PRN
     Route: 048
     Dates: start: 20220328
  12. URSODIOL [Concomitant]
     Active Substance: URSODIOL
     Indication: Pruritus
     Dosage: FINGER TIP UNIT, PRN
     Route: 061
     Dates: start: 20220328
  13. CLOBETASOL [Concomitant]
     Active Substance: CLOBETASOL
     Indication: Pruritus
     Dosage: FINGER TIP UNIT, PRN;0.05%15G
     Route: 061
     Dates: start: 20220328
  14. SODIUM CHLORIDE [Concomitant]
     Active Substance: SODIUM CHLORIDE
     Indication: Dehydration
     Dosage: 2000 ML, QD
     Route: 042
     Dates: start: 20220410, end: 20220411
  15. PLASMA SOLUTION A [Concomitant]
     Indication: Dehydration
     Dosage: 1000 ML, QD
     Route: 042
     Dates: start: 20220410, end: 20220410
  16. ACETYLCYSTEINE [Concomitant]
     Active Substance: ACETYLCYSTEINE
     Indication: Prophylaxis
     Dosage: 600 MG, 1X
     Route: 042
     Dates: start: 20220410, end: 20220410
  17. VITAMIN K1 [Concomitant]
     Active Substance: PHYTONADIONE
     Indication: Hypokalaemia
     Dosage: 10 MG, 1X
     Route: 042
     Dates: start: 20220410, end: 20220410
  18. SODIUM CHLORIDE [Concomitant]
     Active Substance: SODIUM CHLORIDE
     Indication: Vehicle solution use
     Dosage: 100 ML, 1X
     Route: 042
     Dates: start: 20220410, end: 20220410
  19. SODIUM CHLORIDE [Concomitant]
     Active Substance: SODIUM CHLORIDE
     Indication: Vehicle solution use
     Dosage: 100 ML, 1X
     Route: 042
     Dates: start: 20220410, end: 20220410
  20. SODIUM CHLORIDE [Concomitant]
     Active Substance: SODIUM CHLORIDE
     Indication: Vehicle solution use
     Dosage: 250 ML, 1X
     Route: 042
     Dates: start: 20220411, end: 20220411
  21. CALCIUM CHLORIDE [Concomitant]
     Active Substance: CALCIUM CHLORIDE
     Indication: Hypocalcaemia
     Dosage: 600 MG, 1X
     Route: 042
     Dates: start: 20220410, end: 20220410
  22. COMBIFLEX [AMINO ACIDS NOS;CALCIUM;GLUCOSE;MAGNESIUM;POTASSIUM;SODIUM] [Concomitant]
     Indication: Nutritional supplementation
     Dosage: 1000 ML, QD
     Route: 042
     Dates: start: 20220410, end: 20220414
  23. FURTMAN [Concomitant]
     Indication: Mineral supplementation
     Dosage: 0.5 ML, QD
     Route: 042
  24. TAMIPOOL [VITAMINS NOS] [Concomitant]
     Indication: Vitamin supplementation
     Dosage: 5 ML, QD
     Route: 042
     Dates: start: 20220410, end: 20220414
  25. POTASSIUM CHLORIDE [Concomitant]
     Active Substance: POTASSIUM CHLORIDE
     Indication: Hypokalaemia
     Dosage: 600 MG, TID
     Route: 048
     Dates: start: 20220411, end: 20220411
  26. POTASSIUM CHLORIDE [Concomitant]
     Active Substance: POTASSIUM CHLORIDE
     Dosage: 1200 MG, TID
     Route: 048
     Dates: start: 20220413, end: 20220413
  27. TRAMADOL HYDROCHLORIDE [Concomitant]
     Active Substance: TRAMADOL HYDROCHLORIDE
     Indication: Pain
     Dosage: 50 MG, 1X
     Route: 042
     Dates: start: 20220411, end: 20220411
  28. CYNACTEN [Concomitant]
     Indication: Diagnostic procedure
     Dosage: 0.25 MG, 1X
     Route: 042
     Dates: start: 20220411, end: 20220411
  29. NORVASC [Concomitant]
     Active Substance: AMLODIPINE BESYLATE
     Indication: Hypertension
     Dosage: 5 MG, QD
     Route: 048
     Dates: start: 20220411
  30. FENOFIBRATE [Concomitant]
     Active Substance: FENOFIBRATE
     Indication: Metabolic disorder prophylaxis
     Dosage: 25 MG, QD
     Route: 048
     Dates: start: 20220411
  31. CRESTOR [Concomitant]
     Active Substance: ROSUVASTATIN CALCIUM
     Indication: Metabolic disorder prophylaxis
     Dosage: 2.5 MG, QD
     Route: 048
     Dates: start: 20220411
  32. ASPIRIN [Concomitant]
     Active Substance: ASPIRIN
     Indication: Cardiomyopathy alcoholic
     Dosage: 100 MG, QD
     Route: 048
     Dates: start: 20220411
  33. SODIUM BICARBONATE [Concomitant]
     Active Substance: SODIUM BICARBONATE
     Indication: Prophylaxis
     Dosage: 80 MEQ, QD
     Route: 042
     Dates: start: 20220411, end: 20220412
  34. SODIUM BICARBONATE [Concomitant]
     Active Substance: SODIUM BICARBONATE
     Dosage: 40 MEQ, 1X
     Route: 042
     Dates: start: 20220412, end: 20220412
  35. SODIUM CHLORIDE [Concomitant]
     Active Substance: SODIUM CHLORIDE
     Indication: Vehicle solution use
     Dosage: 1000 ML, QD
     Route: 042
     Dates: start: 20220411, end: 20220412
  36. MAGNESIUM OXIDE [Concomitant]
     Active Substance: MAGNESIUM OXIDE
     Indication: Constipation
     Dosage: 250 MG, QD
     Route: 048
     Dates: start: 20220412
  37. BISOPROLOL FUMARATE [Concomitant]
     Active Substance: BISOPROLOL FUMARATE
     Indication: Cardiomyopathy alcoholic
     Dosage: 1.25 MG, QD
     Route: 048
     Dates: start: 20220413
  38. OXYCODONE HYDROCHLORIDE [Concomitant]
     Active Substance: OXYCODONE HYDROCHLORIDE
     Indication: Pain
     Dosage: 5 MG, PRN
     Route: 048
     Dates: start: 20220414
  39. NACL.K40 [Concomitant]
     Indication: Hypokalaemia
     Dosage: 1000 ML, QD (NORMAL SALINE 0.9% NAK40)
     Route: 042
     Dates: start: 20220410, end: 20220412
  40. NACL.K40 [Concomitant]
     Indication: Hyponatraemia
  41. NACL.K20 [Concomitant]
     Indication: Hypokalaemia
     Dosage: 100 ML, 1X
     Route: 042
     Dates: start: 20220411, end: 20220411
  42. NACL.K20 [Concomitant]
     Indication: Hyponatraemia

REACTIONS (1)
  - Acute kidney injury [Recovered/Resolved]

NARRATIVE: CASE EVENT DATE: 20220410
